FAERS Safety Report 24285703 (Version 1)
Quarter: 2024Q3

REPORT INFORMATION
  Report Type: Spontaneous
  Country: US (occurrence: US)
  Receive Date: 20240905
  Receipt Date: 20240905
  Transmission Date: 20241017
  Serious: Yes (Disabling, Other)
  Sender: CELLTRION
  Company Number: US-CELLTRION INC.-2024US021139

PATIENT

DRUGS (1)
  1. BEVACIZUMAB [Suspect]
     Active Substance: BEVACIZUMAB
     Indication: Retinopathy
     Dosage: 0.625 MG/ 0.025ML BEVACIZUMAB INJECTED 1.5 MM BEHIND THE LIMBUS TEMPORALLY ON A 32-GAUGE NEEDLE

REACTIONS (2)
  - Glaucoma [Unknown]
  - Intentional product use issue [Unknown]
